FAERS Safety Report 14113473 (Version 1)
Quarter: 2017Q4

REPORT INFORMATION
  Report Type: Spontaneous
  Country: US (occurrence: US)
  Receive Date: 20171023
  Receipt Date: 20171023
  Transmission Date: 20180321
  Serious: No
  Sender: FDA-Public Use
  Company Number: US-009507513-1710USA002337

PATIENT
  Age: 74 Year
  Sex: Male

DRUGS (6)
  1. STERILE DILUENT [Suspect]
     Active Substance: WATER
     Dosage: UNK
     Dates: start: 20170928
  2. PERCOCET [Concomitant]
     Active Substance: ACETAMINOPHEN\OXYCODONE HYDROCHLORIDE
     Dosage: UNK
  3. ZOSTAVAX [Suspect]
     Active Substance: VARICELLA-ZOSTER VIRUS STRAIN OKA/MERCK LIVE ANTIGEN
     Indication: PROPHYLAXIS
     Dosage: 1 DF
     Dates: start: 20170928, end: 20170928
  4. TAMIFLU [Concomitant]
     Active Substance: OSELTAMIVIR PHOSPHATE
     Dosage: UNK
  5. CRESTOR [Concomitant]
     Active Substance: ROSUVASTATIN CALCIUM
     Dosage: UNK
  6. SODIUM (UNSPECIFIED) [Concomitant]
     Dosage: UNK

REACTIONS (4)
  - Blood pressure decreased [Recovering/Resolving]
  - Lethargy [Recovering/Resolving]
  - Myalgia [Recovering/Resolving]
  - Feeling abnormal [Recovering/Resolving]

NARRATIVE: CASE EVENT DATE: 20171002
